FAERS Safety Report 6334067 (Version 8)
Quarter: 2022Q1

REPORT INFORMATION
  Report Type: Report from Study
  Country: US (occurrence: US)
  Receive Date: 20070615
  Receipt Date: 20220131
  Transmission Date: 20220423
  Serious: Yes (Death, Hospitalization)
  Sender: FDA-Public Use
  Company Number: US-PFIZER INC-2007048009

PATIENT
  Age: 74 Year
  Sex: Female
  Weight: 62.1 kg

DRUGS (13)
  1. SUTENT [Suspect]
     Active Substance: SUNITINIB MALATE
     Indication: Thyroid neoplasm
     Dosage: CYCLE = 6 WEEK: QD X 4 WEEKS
     Route: 048
     Dates: start: 20061227, end: 20070524
  2. OXYCODONE [Concomitant]
     Active Substance: OXYCODONE
  3. MARINOL [Concomitant]
     Active Substance: DRONABINOL
  4. LEVOXYL [Concomitant]
     Active Substance: LEVOTHYROXINE SODIUM
  5. METHOCARBAMOL [Concomitant]
     Active Substance: METHOCARBAMOL
  6. LISINOPRIL [Concomitant]
     Active Substance: LISINOPRIL
  7. PROCHLORPERAZINE [Concomitant]
     Active Substance: PROCHLORPERAZINE
  8. SYNTHROID [Concomitant]
     Active Substance: LEVOTHYROXINE SODIUM
  9. PREVACID [Concomitant]
     Active Substance: LANSOPRAZOLE
  10. FLUTROLINE [Concomitant]
     Active Substance: FLUTROLINE
  11. PROCARDIA [Concomitant]
     Active Substance: NIFEDIPINE
  12. PROTONIX [Concomitant]
     Active Substance: PANTOPRAZOLE SODIUM
  13. COMPAZINE [Concomitant]
     Active Substance: PROCHLORPERAZINE MALEATE

REACTIONS (6)
  - Rhabdomyolysis [Fatal]
  - Acute kidney injury [Fatal]
  - Renal failure [Fatal]
  - Platelet count decreased [Unknown]
  - Urinary tract infection [Unknown]
  - Dehydration [Unknown]

NARRATIVE: CASE EVENT DATE: 20070525
